FAERS Safety Report 22607077 (Version 2)
Quarter: 2023Q2

REPORT INFORMATION
  Report Type: Report from Study
  Country: TW (occurrence: TW)
  Receive Date: 20230615
  Receipt Date: 20230628
  Transmission Date: 20230721
  Serious: Yes (Other)
  Sender: FDA-Public Use
  Company Number: TW-BoehringerIngelheim-2023-BI-242684

PATIENT
  Age: 65 Year
  Sex: Male
  Weight: 64 kg

DRUGS (4)
  1. INVESTIGATIONAL PRODUCT [Suspect]
     Active Substance: INVESTIGATIONAL PRODUCT
     Indication: Oesophageal squamous cell carcinoma
     Route: 042
     Dates: start: 20220613
  2. AFATINIB [Suspect]
     Active Substance: AFATINIB
     Indication: Oesophageal squamous cell carcinoma
     Route: 048
     Dates: start: 20220613, end: 20220711
  3. AFATINIB [Suspect]
     Active Substance: AFATINIB
     Route: 048
     Dates: start: 20220725
  4. TETRACYCLINE Oph Oint [Concomitant]
     Indication: Paronychia
     Dosage: 2 DRIPS?ROUTE: EXT
     Route: 011
     Dates: start: 20230602

REACTIONS (1)
  - Adrenal insufficiency [Not Recovered/Not Resolved]

NARRATIVE: CASE EVENT DATE: 20230605
